FAERS Safety Report 9298777 (Version 3)
Quarter: 2013Q2

REPORT INFORMATION
  Report Type: Spontaneous
  Country: CN (occurrence: CN)
  Receive Date: 20130520
  Receipt Date: 20130627
  Transmission Date: 20140414
  Serious: Yes (Hospitalization)
  Sender: FDA-Public Use
  Company Number: CN-GLAXOSMITHKLINE-B0892686A

PATIENT
  Age: 4 Year
  Sex: Female

DRUGS (1)
  1. BACTROBAN [Suspect]
     Indication: BLISTER
     Route: 061
     Dates: start: 20130418, end: 20130418

REACTIONS (6)
  - Drug administration error [Recovered/Resolved]
  - Tonsillitis [Recovering/Resolving]
  - Mouth ulceration [Recovering/Resolving]
  - Dry mouth [Recovered/Resolved]
  - Pruritus [Not Recovered/Not Resolved]
  - Dysphonia [Unknown]
